FAERS Safety Report 4275716-0 (Version None)
Quarter: 2004Q1

REPORT INFORMATION
  Report Type: 
  Country: None (occurrence: None)
  Receive Date: 20040116
  Receipt Date: 20040106
  Transmission Date: 20041129
  Serious: Yes (Other)
  Sender: FDA-Public Use
  Company Number: US-JNJFOC-20040100883

PATIENT
  Age: 36 Year
  Sex: Male
  Weight: 87.0906 kg

DRUGS (1)
  1. REMICADE [Suspect]
     Indication: CROHN'S DISEASE
     Dosage: 13 IN

REACTIONS (3)
  - ANAL DILATION PROCEDURE [None]
  - FREQUENT BOWEL MOVEMENTS [None]
  - SMALL INTESTINAL RESECTION [None]
